FAERS Safety Report 8575475-7 (Version None)
Quarter: 2012Q3

REPORT INFORMATION
  Report Type: 
  Country: None (occurrence: None)
  Receive Date: 20120807
  Receipt Date: 20120730
  Transmission Date: 20120928
  Serious: No
  Sender: FDA-Public Use
  Company Number: US-B.I. PHARMACEUTICALS,INC./RIDGEFIELD-2012-BP-12707BP

PATIENT
  Sex: Female

DRUGS (5)
  1. CALCIUM SUPPLEMENT [Concomitant]
     Indication: PROPHYLAXIS
  2. FORTICAL [Concomitant]
     Indication: OSTEOPENIA
     Route: 045
  3. SPIRIVA [Suspect]
     Indication: CHRONIC OBSTRUCTIVE PULMONARY DISEASE
     Dosage: 18 MCG
     Route: 055
     Dates: start: 20120526
  4. XELODA [Concomitant]
     Indication: BREAST CANCER
     Dosage: 3600 MG
     Route: 048
  5. MULTI-VITAMIN [Concomitant]
     Indication: PROPHYLAXIS

REACTIONS (1)
  - DYSPNOEA [None]
